FAERS Safety Report 10205078 (Version 1)
Quarter: 2014Q2

REPORT INFORMATION
  Report Type: Spontaneous
  Country: US (occurrence: US)
  Receive Date: 20140529
  Receipt Date: 20140529
  Transmission Date: 20141212
  Serious: No
  Sender: FDA-Public Use
  Company Number: US-BAYER-2014-069455

PATIENT
  Age: 83 Year
  Sex: Male
  Weight: 88.44 kg

DRUGS (6)
  1. ALEVE LIQUID GELS [Suspect]
     Indication: HERPES ZOSTER
     Dosage: 2 DF, BID
     Route: 048
     Dates: start: 201404
  2. ALEVE LIQUID GELS [Suspect]
     Indication: PAIN
  3. ALEVE TABLET [Suspect]
     Dosage: UNK
     Route: 048
  4. ISOSORBIDE [Concomitant]
  5. LISINOPRIL [Concomitant]
  6. METOPROLOL [Concomitant]

REACTIONS (4)
  - Drug ineffective [None]
  - Intentional product misuse [None]
  - Extra dose administered [None]
  - Drug ineffective [None]
